FAERS Safety Report 10181879 (Version 1)
Quarter: 2014Q2

REPORT INFORMATION
  Report Type: Spontaneous
  Country: US (occurrence: US)
  Receive Date: 20140519
  Receipt Date: 20140519
  Transmission Date: 20141212
  Serious: No
  Sender: FDA-Public Use
  Company Number: US-ASTRAZENECA-2013SE78277

PATIENT
  Age: 65 Year
  Sex: Male
  Weight: 102.1 kg

DRUGS (2)
  1. ATACAND [Suspect]
     Indication: BLOOD PRESSURE ABNORMAL
     Route: 048
  2. NOT CLARIFIED [Concomitant]

REACTIONS (3)
  - Upper respiratory tract congestion [Unknown]
  - Throat irritation [Unknown]
  - Cough [Unknown]
